FAERS Safety Report 11631576 (Version 3)
Quarter: 2015Q4

REPORT INFORMATION
  Report Type: Spontaneous
  Country: US (occurrence: US)
  Receive Date: 20151015
  Receipt Date: 20151110
  Transmission Date: 20160304
  Serious: Yes (Other)
  Sender: FDA-Public Use
  Company Number: US-009507513-1510USA005125

PATIENT
  Age: 24 Year
  Sex: Female

DRUGS (2)
  1. NEXPLANON [Suspect]
     Active Substance: ETONOGESTREL
     Dosage: UNK
     Route: 059
     Dates: start: 20151012
  2. NEXPLANON [Suspect]
     Active Substance: ETONOGESTREL
     Indication: CONTRACEPTION
     Dosage: IN ARM
     Route: 059
     Dates: end: 20151012

REACTIONS (9)
  - Haematoma [Unknown]
  - Drug ineffective [Unknown]
  - Surgery [Unknown]
  - Device difficult to use [Unknown]
  - Pregnancy with implant contraceptive [Recovered/Resolved]
  - Medical device complication [Recovered/Resolved]
  - Unintended pregnancy [Recovered/Resolved]
  - Device deployment issue [Recovered/Resolved]
  - Device kink [Recovered/Resolved]

NARRATIVE: CASE EVENT DATE: 201510
